FAERS Safety Report 25525442 (Version 1)
Quarter: 2025Q3

REPORT INFORMATION
  Report Type: Spontaneous
  Country: US (occurrence: None)
  Receive Date: 20250704
  Receipt Date: 20250704
  Transmission Date: 20251021
  Serious: Yes (Hospitalization)
  Sender: FDA-CTU
  Company Number: None

PATIENT
  Sex: Male

DRUGS (1)
  1. RINVOQ [Suspect]
     Active Substance: UPADACITINIB
     Indication: Psoriatic arthropathy
     Dosage: 15 MG DAILY ORAL
     Route: 048
     Dates: start: 20230717

REACTIONS (3)
  - Pneumonia [None]
  - Condition aggravated [None]
  - Psoriatic arthropathy [None]
